FAERS Safety Report 22788794 (Version 2)
Quarter: 2023Q4

REPORT INFORMATION
  Report Type: Spontaneous
  Country: FI (occurrence: FI)
  Receive Date: 20230804
  Receipt Date: 20231005
  Transmission Date: 20240110
  Serious: Yes (Other)
  Sender: FDA-Public Use
  Company Number: FI-MYLANLABS-2023M1080434

PATIENT
  Age: 26 Year
  Sex: Male

DRUGS (2)
  1. OLANZAPINE [Suspect]
     Active Substance: OLANZAPINE
     Indication: Schizophrenia
     Dosage: 10 MG, DAILY
     Route: 065
     Dates: start: 20230720, end: 20230721
  2. OLANZAPINE [Suspect]
     Active Substance: OLANZAPINE
     Indication: Psychotic disorder

REACTIONS (4)
  - White blood cell count increased [Unknown]
  - Neutrophil count increased [Recovered/Resolved]
  - Neutrophil count decreased [Recovered/Resolved]
  - Restlessness [Unknown]

NARRATIVE: CASE EVENT DATE: 20230721
